FAERS Safety Report 9251663 (Version 1)
Quarter: 2013Q2

REPORT INFORMATION
  Report Type: Spontaneous
  Country: US (occurrence: US)
  Receive Date: 20130424
  Receipt Date: 20130424
  Transmission Date: 20140414
  Serious: No
  Sender: FDA-Public Use
  Company Number: US-PFIZER INC-2013121460

PATIENT
  Age: 63 Year
  Sex: Male
  Weight: 83.45 kg

DRUGS (4)
  1. VIAGRA [Suspect]
     Indication: ERECTILE DYSFUNCTION
     Dosage: 50 MG, UNK
     Dates: start: 2012
  2. VIAGRA [Suspect]
     Dosage: 100 MG, UNK
  3. INSULIN [Concomitant]
     Indication: DIABETES MELLITUS
     Dosage: 30 IU, 1X/DAY
  4. CIALIS [Concomitant]
     Indication: ERECTILE DYSFUNCTION
     Dosage: UNK

REACTIONS (1)
  - Drug ineffective [Unknown]
